FAERS Safety Report 18069524 (Version 7)
Quarter: 2021Q1

REPORT INFORMATION
  Report Type: Spontaneous
  Country: US (occurrence: US)
  Receive Date: 20200726
  Receipt Date: 20210317
  Transmission Date: 20210419
  Serious: No
  Sender: FDA-Public Use
  Company Number: US-AKCEA THERAPEUTICS-2020IS001306

PATIENT
  Age: 67 Year
  Sex: Male

DRUGS (2)
  1. ISSD (INTEGRATED SYRINGE SAFETY DEVICE) [Suspect]
     Active Substance: DEVICE
  2. TEGSEDI [Suspect]
     Active Substance: INOTERSEN SODIUM
     Indication: HEREDITARY NEUROPATHIC AMYLOIDOSIS
     Route: 058

REACTIONS (15)
  - Blood creatinine abnormal [Not Recovered/Not Resolved]
  - Bilirubin urine present [Unknown]
  - Platelet count decreased [Unknown]
  - Urine ketone body present [Unknown]
  - Protein urine present [Not Recovered/Not Resolved]
  - Urine protein/creatinine ratio abnormal [Not Recovered/Not Resolved]
  - Nitrite urine present [Unknown]
  - Urinary casts [Unknown]
  - Blood bilirubin abnormal [Unknown]
  - Glomerular filtration rate decreased [Not Recovered/Not Resolved]
  - Chromaturia [Unknown]
  - Bacterial test positive [Unknown]
  - White blood cells urine positive [Unknown]
  - Urine analysis abnormal [Unknown]
  - Urine leukocyte esterase positive [Unknown]
